FAERS Safety Report 16757761 (Version 1)
Quarter: 2019Q3

REPORT INFORMATION
  Report Type: Spontaneous
  Country: US (occurrence: US)
  Receive Date: 20190830
  Receipt Date: 20190830
  Transmission Date: 20191005
  Serious: Yes (Other)
  Sender: FDA-Public Use
  Company Number: US-CIPLA LTD.-2019US05880

PATIENT

DRUGS (1)
  1. GABAPENTIN. [Suspect]
     Active Substance: GABAPENTIN
     Indication: NERVOUS SYSTEM DISORDER
     Dosage: 1 DOSAGE FORM, QD IN THE EVENING
     Route: 048
     Dates: start: 201907

REACTIONS (3)
  - Condition aggravated [Not Recovered/Not Resolved]
  - Drug ineffective [Unknown]
  - Dizziness [Recovered/Resolved]

NARRATIVE: CASE EVENT DATE: 201907
